FAERS Safety Report 7951485-5 (Version None)
Quarter: 2011Q4

REPORT INFORMATION
  Report Type: 
  Country: None (occurrence: None)
  Receive Date: 20111201
  Receipt Date: 20111122
  Transmission Date: 20120403
  Serious: Yes (Hospitalization)
  Sender: FDA-Public Use
  Company Number: ES-SANOFI-AVENTIS-2011SA065249

PATIENT
  Age: 60 Year
  Sex: Male

DRUGS (10)
  1. LEXATIN [Concomitant]
  2. NOCTAMID [Concomitant]
  3. DOCETAXEL [Suspect]
     Indication: NON-SMALL CELL LUNG CANCER
     Dosage: DOSE: 75MG/M2 +75 MG/M2
     Route: 042
     Dates: start: 20110712
  4. FILGRASTIM [Concomitant]
     Dates: start: 20110928
  5. OMEPRAZOLE [Concomitant]
  6. FORTECORTIN [Concomitant]
  7. SEPTRA [Concomitant]
  8. NOLOTIL [Concomitant]
  9. CISPLATIN [Suspect]
     Indication: NON-SMALL CELL LUNG CANCER
     Route: 042
  10. ENANTYUM [Concomitant]

REACTIONS (3)
  - ILEUS PARALYTIC [None]
  - HYPONATRAEMIA [None]
  - NEUTROPENIA [None]
